FAERS Safety Report 10904514 (Version 1)
Quarter: 2015Q1

REPORT INFORMATION
  Report Type: Spontaneous
  Country: GB (occurrence: GB)
  Receive Date: 20150311
  Receipt Date: 20150311
  Transmission Date: 20150721
  Serious: Yes (Hospitalization, Other)
  Sender: FDA-Public Use
  Company Number: GB-CIPLA LTD.-2015GB01737

PATIENT

DRUGS (10)
  1. ALFUZOSIN [Suspect]
     Active Substance: ALFUZOSIN
     Dosage: 10 MG, UNK
  2. AMANTADINE [Suspect]
     Active Substance: AMANTADINE
     Dosage: 200 MG, UNK
  3. CARBIDOPA. [Suspect]
     Active Substance: CARBIDOPA
     Dosage: 150 MG, FIVE TIMES IN A DAY
  4. LEVODOPA [Suspect]
     Active Substance: LEVODOPA
  5. ENTACAPONE. [Suspect]
     Active Substance: ENTACAPONE
  6. APOMORPHINE [Suspect]
     Active Substance: APOMORPHINE
     Dosage: 3.5 MG, PER HOUR DAY
     Dates: start: 2012
  7. AMANTADINE [Suspect]
     Active Substance: AMANTADINE
     Dosage: 100 MG, UNK
  8. APOMORPHINE [Suspect]
     Active Substance: APOMORPHINE
     Dosage: 2.5 MG PER HOUR NIGHT
     Dates: start: 2012
  9. FINASTERIDE. [Suspect]
     Active Substance: FINASTERIDE
     Dosage: 5 MG, UNK
  10. MIRTAZAPINE. [Suspect]
     Active Substance: MIRTAZAPINE
     Dosage: 30 MG, QD IN EVENING

REACTIONS (13)
  - Pelvic fracture [Unknown]
  - Nasal discomfort [Unknown]
  - Sensory disturbance [Unknown]
  - Hallucination, visual [Unknown]
  - Fall [Unknown]
  - Oral discomfort [Not Recovered/Not Resolved]
  - Rash [Unknown]
  - Skin haemorrhage [Unknown]
  - Soft tissue mass [Unknown]
  - Formication [Unknown]
  - Illusion [Unknown]
  - Depressed mood [Unknown]
  - On and off phenomenon [None]
